FAERS Safety Report 9761580 (Version 1)
Quarter: 2013Q4

REPORT INFORMATION
  Report Type: Spontaneous
  Country: FR (occurrence: FR)
  Receive Date: 20131216
  Receipt Date: 20131216
  Transmission Date: 20140711
  Serious: Yes (Hospitalization, Other)
  Sender: FDA-Public Use
  Company Number: PHHY2013FR144475

PATIENT
  Age: 35 Year
  Sex: Female

DRUGS (1)
  1. NAPROXEN [Suspect]
     Indication: ARTHRALGIA
     Dosage: 550 MG, UNK

REACTIONS (11)
  - Haemoglobinaemia [Unknown]
  - Renal failure acute [Recovering/Resolving]
  - Fatigue [Recovering/Resolving]
  - Asthenia [Recovering/Resolving]
  - Decreased appetite [Recovering/Resolving]
  - Nausea [Recovering/Resolving]
  - Face oedema [Recovering/Resolving]
  - Oliguria [Recovering/Resolving]
  - Renal impairment [Recovering/Resolving]
  - Oedema [Recovering/Resolving]
  - Thirst [Recovering/Resolving]
